FAERS Safety Report 4537332-2 (Version None)
Quarter: 2004Q4

REPORT INFORMATION
  Report Type: 
  Country: None (occurrence: None)
  Receive Date: 20041221
  Receipt Date: 20041115
  Transmission Date: 20050328
  Serious: Yes (Death)
  Sender: FDA-Public Use
  Company Number: MK200411-0302-1

PATIENT
  Age: 65 Year

DRUGS (2)
  1. OXYCODONE AND ACETAMINOPHEN [Suspect]
     Dates: start: 20030101
  2. ACETAMINOPHEN W/ PROPOXYPHENE HCL [Suspect]
     Dates: start: 20030101

REACTIONS (2)
  - COMPLETED SUICIDE [None]
  - MULTIPLE DRUG OVERDOSE INTENTIONAL [None]
